FAERS Safety Report 14007599 (Version 1)
Quarter: 2017Q3

REPORT INFORMATION
  Report Type: Spontaneous
  Country: US (occurrence: US)
  Receive Date: 20170925
  Receipt Date: 20170925
  Transmission Date: 20171128
  Serious: Yes (Other)
  Sender: FDA-Public Use
  Company Number: US-MALLINCKRODT-T201703825

PATIENT
  Sex: Male
  Weight: 86 kg

DRUGS (1)
  1. HYDROCODONE/ACETAMINOPHEN [Suspect]
     Active Substance: ACETAMINOPHEN\HYDROCODONE
     Indication: PAIN
     Dosage: 7.5/325MG TABLET, ONE TABLET EVERY 4 AS NEEDED
     Route: 048
     Dates: start: 2015

REACTIONS (3)
  - Choking [Unknown]
  - Product coating issue [Unknown]
  - Product use complaint [Unknown]
